FAERS Safety Report 7317412-9 (Version None)
Quarter: 2011Q1

REPORT INFORMATION
  Report Type: 
  Country: None (occurrence: None)
  Receive Date: 20110226
  Receipt Date: 20101117
  Transmission Date: 20110831
  Serious: No
  Sender: FDA-Public Use
  Company Number: US-ALLERGAN-1013774US

PATIENT
  Age: 46 Year
  Sex: Female

DRUGS (7)
  1. BOTOX COSMETIC [Suspect]
     Dosage: UNK
     Dates: start: 20090401, end: 20090401
  2. BOTOX COSMETIC [Suspect]
     Indication: SKIN WRINKLING
     Dosage: 29 UNITS, SINGLE
     Dates: start: 20100922, end: 20100922
  3. PROGESTERONE [Concomitant]
  4. IMITREX [Concomitant]
  5. GLUCOSAMINE [Concomitant]
  6. BOTOX COSMETIC [Suspect]
     Dosage: UNK
     Dates: start: 20100201, end: 20100201
  7. MULTI-VITAMIN [Concomitant]

REACTIONS (1)
  - EYELID PTOSIS [None]
